FAERS Safety Report 5210631-7 (Version None)
Quarter: 2006Q4

REPORT INFORMATION
  Report Type: 
  Country: None (occurrence: None)
  Receive Date: 20061106
  Receipt Date: 20060705
  Transmission Date: 20070319
  Serious: No
  Sender: FDA-Public Use
  Company Number: VNL_0161_2006

PATIENT
  Age: 68 Year
  Sex: Male
  Weight: 89.3586 kg

DRUGS (1)
  1. APOKYN [Suspect]
     Indication: PARKINSON'S DISEASE
     Dosage: 0.3 ML TID SC
     Route: 058
     Dates: start: 20060501

REACTIONS (2)
  - FEELING ABNORMAL [None]
  - INJECTION SITE PRURITUS [None]
